FAERS Safety Report 5419407-9 (Version None)
Quarter: 2007Q3

REPORT INFORMATION
  Report Type: 
  Country: None (occurrence: None)
  Receive Date: 20070820
  Receipt Date: 20070814
  Transmission Date: 20080115
  Serious: Yes (Hospitalization)
  Sender: FDA-Public Use
  Company Number: A0670194A

PATIENT
  Age: 68 Year
  Sex: Female
  Weight: 72.7 kg

DRUGS (13)
  1. AVANDIA [Suspect]
     Indication: DRUG USE FOR UNKNOWN INDICATION
     Route: 048
     Dates: end: 20050101
  2. ACTOS [Concomitant]
  3. GLIPIZIDE [Concomitant]
  4. UNKNOWN [Concomitant]
  5. CLONAZEPAM [Concomitant]
  6. PROPOXYPHENE NAPSYLATE AND ACETAMINOPHEN [Concomitant]
  7. NEXIUM [Concomitant]
  8. POTASSIUM CHLORIDE [Concomitant]
  9. TYLENOL EXTRA STRENGTH [Concomitant]
  10. ASPIRIN [Concomitant]
  11. DIPHENHYDRAMINE HCL [Concomitant]
  12. COUMADIN [Concomitant]
  13. UNKNOWN BLOOD PRESSURE MEDICATION [Concomitant]

REACTIONS (10)
  - ANAEMIA [None]
  - ARRHYTHMIA [None]
  - CONDITION AGGRAVATED [None]
  - COORDINATION ABNORMAL [None]
  - FLUID RETENTION [None]
  - HERNIA [None]
  - LIFE EXPECTANCY SHORTENED [None]
  - LOSS OF CONSCIOUSNESS [None]
  - VISUAL ACUITY REDUCED [None]
  - WEIGHT INCREASED [None]
